FAERS Safety Report 6693168-8 (Version None)
Quarter: 2010Q2

REPORT INFORMATION
  Report Type: 
  Country: None (occurrence: None)
  Receive Date: 20100422
  Receipt Date: 20100416
  Transmission Date: 20101027
  Serious: Yes (Hospitalization, Other)
  Sender: FDA-Public Use
  Company Number: JP-WYE-H14671910

PATIENT
  Age: 50 Year
  Sex: Female

DRUGS (3)
  1. ZOSYN [Suspect]
     Indication: PYREXIA
     Route: 041
     Dates: start: 20100405, end: 20100411
  2. ZOSYN [Suspect]
     Indication: FEBRILE NEUTROPENIA
  3. DALACIN [Concomitant]
     Indication: PYREXIA
     Dosage: UNKNOWN

REACTIONS (3)
  - BLOOD PRESSURE DECREASED [None]
  - PAIN [None]
  - PARAESTHESIA [None]
